FAERS Safety Report 23603138 (Version 3)
Quarter: 2024Q1

REPORT INFORMATION
  Report Type: Spontaneous
  Country: CN (occurrence: CN)
  Receive Date: 20240306
  Receipt Date: 20240329
  Transmission Date: 20240410
  Serious: Yes (Hospitalization)
  Sender: FDA-Public Use
  Company Number: CN-MACLEODS PHARMACEUTICALS US LTD-MAC2024046158

PATIENT

DRUGS (2)
  1. METHIMAZOLE [Suspect]
     Active Substance: METHIMAZOLE
     Indication: Hyperthyroidism
     Dosage: 20 MILLIGRAM, QD (THIAMAZOLE TABLETS?10 MG*50)
     Route: 048
     Dates: start: 20210619, end: 20210710
  2. INSULIN NOS [Concomitant]
     Active Substance: INSULIN NOS
     Indication: Type 2 diabetes mellitus
     Dosage: 4 INTERNATIONAL UNIT
     Route: 065

REACTIONS (3)
  - Jaundice cholestatic [Recovered/Resolved]
  - Drug-induced liver injury [Recovered/Resolved]
  - Treatment failure [Unknown]
